FAERS Safety Report 13631316 (Version 1)
Quarter: 2017Q2

REPORT INFORMATION
  Report Type: Spontaneous
  Country: US (occurrence: US)
  Receive Date: 20170531
  Receipt Date: 20170531
  Transmission Date: 20170830
  Serious: No
  Sender: FDA-Public Use
  Company Number: US-ASTELLAS-1370701

PATIENT
  Age: 73 Year
  Sex: Male
  Weight: 84.44 kg

DRUGS (8)
  1. TRAMADOL. [Concomitant]
     Active Substance: TRAMADOL
  2. TARCEVA [Suspect]
     Active Substance: ERLOTINIB HYDROCHLORIDE
     Indication: LUNG NEOPLASM MALIGNANT
     Dosage: DAILY
     Route: 048
     Dates: start: 20131026
  3. BABY ASPIRIN [Concomitant]
     Active Substance: ASPIRIN
  4. TARCEVA [Suspect]
     Active Substance: ERLOTINIB HYDROCHLORIDE
     Dosage: 3 TABLETS
     Route: 048
     Dates: start: 20130911
  5. TARCEVA [Suspect]
     Active Substance: ERLOTINIB HYDROCHLORIDE
     Dosage: ONCE IN ALTERNATE DAYS
     Route: 048
     Dates: start: 20150328
  6. TARCEVA [Suspect]
     Active Substance: ERLOTINIB HYDROCHLORIDE
     Route: 048
     Dates: start: 20140827
  7. TARCEVA [Suspect]
     Active Substance: ERLOTINIB HYDROCHLORIDE
     Dosage: ONCE IN ALTERNATE DAYS
     Route: 048
     Dates: start: 20150328
  8. CRESTOR [Concomitant]
     Active Substance: ROSUVASTATIN CALCIUM

REACTIONS (11)
  - Rash [Unknown]
  - Hair texture abnormal [Unknown]
  - Acne [Unknown]
  - Contusion [Unknown]
  - Onychoclasis [Unknown]
  - Prostatic disorder [Unknown]
  - Hypothyroidism [Unknown]
  - Decreased appetite [Unknown]
  - Contusion [Unknown]
  - Alopecia [Unknown]
  - Insomnia [Unknown]

NARRATIVE: CASE EVENT DATE: 20160721
